FAERS Safety Report 20306427 (Version 1)
Quarter: 2022Q1

REPORT INFORMATION
  Report Type: Spontaneous
  Country: JP (occurrence: JP)
  Receive Date: 20220106
  Receipt Date: 20220106
  Transmission Date: 20220424
  Serious: Yes (Death, Other)
  Sender: FDA-Public Use
  Company Number: JP-JAZZ-2021-JP-023412

PATIENT
  Age: 53 Year
  Sex: Male
  Weight: 59.1 kg

DRUGS (1)
  1. DEFITELIO [Suspect]
     Active Substance: DEFIBROTIDE SODIUM
     Indication: Venoocclusive liver disease
     Dosage: 25 MILLIGRAM/KILOGRAM/24 HOURS
     Route: 042
     Dates: start: 20210819, end: 20211007

REACTIONS (5)
  - Multiple organ dysfunction syndrome [Unknown]
  - Cystitis haemorrhagic [Unknown]
  - Haematuria [Recovered/Resolved]
  - Pneumonia viral [Fatal]
  - Off label use [Unknown]

NARRATIVE: CASE EVENT DATE: 20210819
